FAERS Safety Report 4740435-0 (Version None)
Quarter: 2005Q3

REPORT INFORMATION
  Report Type: 
  Country: None (occurrence: None)
  Receive Date: 20050729
  Receipt Date: 20050421
  Transmission Date: 20060218
  Serious: Yes (Other)
  Sender: FDA-Public Use
  Company Number: COT_0059_2005

PATIENT
  Age: 50 Year
  Sex: Male
  Weight: 81.6475 kg

DRUGS (16)
  1. VENTAVIS [Suspect]
     Indication: PULMONARY HYPERTENSION
     Dosage: DF Q3HR IH
     Dates: start: 20050420, end: 20050421
  2. VENTAVIS [Suspect]
  3. ASCORBIC ACID [Concomitant]
  4. FOLIC ACID [Concomitant]
  5. THIAMINE HCL [Concomitant]
  6. FERROUS SULFATE TAB [Concomitant]
  7. FUROSEMIDE [Concomitant]
  8. POTASSIUM CHLORIDE [Concomitant]
  9. COUMADIN [Concomitant]
  10. SPIRONOLACTONE [Concomitant]
  11. LEVOTHYROXINE [Concomitant]
  12. MAG OXIDE [Concomitant]
  13. DIGOXIN [Concomitant]
  14. TUSSENEX [Concomitant]
  15. ALBUTEROL [Concomitant]
  16. ALBUTEROL [Concomitant]

REACTIONS (3)
  - CONDITION AGGRAVATED [None]
  - COUGH [None]
  - HAEMOPTYSIS [None]
